FAERS Safety Report 5023486-0 (Version None)
Quarter: 2006Q2

REPORT INFORMATION
  Report Type: 
  Country: None (occurrence: None)
  Receive Date: 20060612
  Receipt Date: 20060511
  Transmission Date: 20061013
  Serious: Yes (Hospitalization)
  Sender: FDA-Public Use
  Company Number: HQWYE348115MAY06

PATIENT
  Sex: Female

DRUGS (3)
  1. ENBREL [Suspect]
     Indication: RHEUMATOID ARTHRITIS
     Route: 058
     Dates: start: 20060304, end: 20060329
  2. PROGRAF [Concomitant]
     Route: 048
     Dates: start: 20060222, end: 20060401
  3. PREDONINE [Concomitant]
     Route: 048
     Dates: end: 20060401

REACTIONS (1)
  - HYPONATRAEMIA [None]
